FAERS Safety Report 4846274-4 (Version None)
Quarter: 2005Q4

REPORT INFORMATION
  Report Type: 
  Country: None (occurrence: None)
  Receive Date: 20051115
  Receipt Date: 20050906
  Transmission Date: 20060501
  Serious: Yes (Hospitalization)
  Sender: FDA-Public Use
  Company Number: 417072

PATIENT
  Age: 50 Year
  Sex: Female
  Weight: 59 kg

DRUGS (14)
  1. PEGASYS [Suspect]
     Indication: HEPATITIS C
     Dosage: 180 MCG  1 PER WEEK SUBCUTANEOUS
     Route: 058
     Dates: start: 20050725
  2. RIBASPHERE [Suspect]
     Indication: HEPATITIS C
     Dosage: 800 MG DAILY ORAL
     Route: 048
     Dates: start: 20050725
  3. GLUCOPHAGE [Concomitant]
  4. WELLBUTRIN XL (BUPROPION) [Concomitant]
  5. LEXAPRO [Concomitant]
  6. FLEXERIL [Concomitant]
  7. LEVOTHYROID (LEVOTHYROXINE) [Concomitant]
  8. LISINOPRIL VS HCTZ (HYDORCHLOROTHIAZIDE OR LISINOPRIL) [Concomitant]
  9. AMITRIPTYLINE HCL [Concomitant]
  10. TEMAZEPAM [Concomitant]
  11. ABILIFY [Concomitant]
  12. INNOPRAN (PROPRANOLOL) [Concomitant]
  13. CLONAZEPAM [Concomitant]
  14. VICOPROFEN [Concomitant]

REACTIONS (5)
  - ANAEMIA [None]
  - ANOREXIA [None]
  - BACK PAIN [None]
  - FATIGUE [None]
  - WHITE BLOOD CELL COUNT DECREASED [None]
